FAERS Safety Report 15833167 (Version 1)
Quarter: 2019Q1

REPORT INFORMATION
  Report Type: Spontaneous
  Country: US (occurrence: US)
  Receive Date: 20190116
  Receipt Date: 20190116
  Transmission Date: 20190417
  Serious: Yes (Other)
  Sender: FDA-Public Use
  Company Number: US-SHIRE-US201901547

PATIENT
  Age: 29 Year
  Sex: Male

DRUGS (1)
  1. ADVATE [Suspect]
     Active Substance: ANTIHEMOPHILIC FACTOR, HUMAN RECOMBINANT
     Indication: PRODUCT USED FOR UNKNOWN INDICATION
     Dosage: UNK
     Route: 065

REACTIONS (3)
  - Exostosis [Unknown]
  - Arthralgia [Unknown]
  - Haemarthrosis [Unknown]

NARRATIVE: CASE EVENT DATE: 20190115
